FAERS Safety Report 7643130-3 (Version None)
Quarter: 2011Q3

REPORT INFORMATION
  Report Type: 
  Country: None (occurrence: None)
  Receive Date: 20110729
  Receipt Date: 20110715
  Transmission Date: 20111222
  Serious: Yes (Hospitalization)
  Sender: FDA-Public Use
  Company Number: US-BIOGENIDEC-2011BI019625

PATIENT
  Age: 23 Year
  Sex: Male
  Weight: 92 kg

DRUGS (17)
  1. MINOXIDIL [Concomitant]
     Indication: HYPERTENSION
     Route: 048
  2. KEPPRA XR [Concomitant]
     Indication: LARYNGOSPASM
     Route: 048
     Dates: start: 20110503
  3. CANDESARTAN CILEXETIL [Concomitant]
     Indication: HYPERTENSION
     Route: 048
  4. GABAPENTIN [Concomitant]
     Indication: HICCUPS
     Route: 048
  5. GABAPENTIN [Concomitant]
     Route: 048
     Dates: end: 20110501
  6. DIAZEPAM [Concomitant]
     Indication: LARYNGOSPASM
     Route: 048
  7. DILAUDID [Concomitant]
     Indication: PAIN
     Route: 048
  8. AMLODIPINE BESYLATE [Concomitant]
     Indication: HYPERTENSION
     Route: 048
  9. LABETALOL HCL [Concomitant]
     Indication: HYPERTENSION
     Route: 048
  10. GABAPENTIN [Concomitant]
     Indication: LARYNGOSPASM
     Route: 048
  11. TYSABRI [Suspect]
     Indication: MULTIPLE SCLEROSIS
     Route: 042
     Dates: start: 20071112, end: 20110511
  12. EPLERENONE [Concomitant]
     Route: 048
  13. CHOLECALCIFEROL [Concomitant]
     Route: 048
  14. GUANFACINE HYDROCHLORIDE [Concomitant]
     Route: 048
  15. CLONIDINE [Concomitant]
     Route: 048
  16. KEPPRA XR [Concomitant]
     Indication: TREMOR
     Route: 048
     Dates: start: 20110503
  17. GABAPENTIN [Concomitant]
     Route: 048
     Dates: end: 20110501

REACTIONS (1)
  - PROGRESSIVE MULTIFOCAL LEUKOENCEPHALOPATHY [None]
